FAERS Safety Report 24297207 (Version 5)
Quarter: 2025Q3

REPORT INFORMATION
  Report Type: Report from Study
  Country: US (occurrence: US)
  Receive Date: 20240909
  Receipt Date: 20250827
  Transmission Date: 20251021
  Serious: Yes (Hospitalization, Other)
  Sender: ROCHE
  Company Number: US-ROCHE-10000073120

PATIENT
  Age: 56 Year
  Sex: Female
  Weight: 59.87 kg

DRUGS (13)
  1. OCREVUS [Suspect]
     Active Substance: OCRELIZUMAB
     Indication: Primary progressive multiple sclerosis
     Dosage: MOST RECENT INFUSION: 22/JUL/2021, 18/AUG/2022, 23/FEB/2023, 28/AUG/2023, 27/FEB/2024,
     Route: 042
     Dates: start: 202003, end: 202411
  2. RITUXIMAB [Suspect]
     Active Substance: RITUXIMAB
     Indication: Product used for unknown indication
     Route: 065
  3. OCREVUS ZUNOVO [Suspect]
     Active Substance: HYALURONIDASE-OCSQ\OCRELIZUMAB
     Indication: Product used for unknown indication
     Route: 065
  4. CALCIUM [Concomitant]
     Active Substance: CALCIUM
  5. BACLOFEN [Concomitant]
     Active Substance: BACLOFEN
     Indication: Muscle spasms
  6. TIZANIDINE [Concomitant]
     Active Substance: TIZANIDINE
     Indication: Muscle spasms
  7. PROPRANOLOL [Concomitant]
     Active Substance: PROPRANOLOL HYDROCHLORIDE
     Indication: Tremor
  8. AMANTADINE [Concomitant]
     Active Substance: AMANTADINE
     Indication: Fatigue
     Route: 048
  9. MAGNESIUM [Concomitant]
     Active Substance: MAGNESIUM
     Indication: Restless legs syndrome
  10. SANCTURA [Concomitant]
     Active Substance: TROSPIUM CHLORIDE
  11. VITAMIN B12 [Concomitant]
     Active Substance: CYANOCOBALAMIN
  12. TUMS [Concomitant]
     Active Substance: CALCIUM CARBONATE
  13. BIOTIN [Concomitant]
     Active Substance: BIOTIN

REACTIONS (23)
  - Monoparesis [Not Recovered/Not Resolved]
  - Memory impairment [Not Recovered/Not Resolved]
  - Muscular weakness [Unknown]
  - Multiple sclerosis relapse [Not Recovered/Not Resolved]
  - Therapeutic response shortened [Unknown]
  - Deep vein thrombosis [Not Recovered/Not Resolved]
  - Drug ineffective [Unknown]
  - Gait disturbance [Unknown]
  - Cellulitis [Recovering/Resolving]
  - Lymphoedema [Not Recovered/Not Resolved]
  - Sensory loss [Not Recovered/Not Resolved]
  - Multiple sclerosis [Unknown]
  - Seizure [Not Recovered/Not Resolved]
  - Thrombosis [Unknown]
  - Tremor [Not Recovered/Not Resolved]
  - Incorrect drug administration rate [Unknown]
  - Urinary incontinence [Not Recovered/Not Resolved]
  - Drug hypersensitivity [Not Recovered/Not Resolved]
  - Thrombosis [Not Recovered/Not Resolved]
  - Hallucination [Recovered/Resolved]
  - Aggression [Recovered/Resolved]
  - Peripheral swelling [Not Recovered/Not Resolved]
  - Dysgraphia [Not Recovered/Not Resolved]

NARRATIVE: CASE EVENT DATE: 20230101
